FAERS Safety Report 4308841-6 (Version None)
Quarter: 2004Q1

REPORT INFORMATION
  Report Type: 
  Country: None (occurrence: None)
  Receive Date: 20040301
  Receipt Date: 20040301
  Transmission Date: 20041129
  Serious: Yes (Life-Threatening, Hospitalization)
  Sender: FDA-Public Use
  Company Number: None

PATIENT
  Age: 51 Year
  Sex: Male
  Weight: 128.8 kg

DRUGS (9)
  1. METOPROLOL TARTRATE [Suspect]
  2. AMIODARONE HCL [Concomitant]
  3. COZAAR [Concomitant]
  4. LEVOXYL [Concomitant]
  5. SPIRONOLACTONE [Concomitant]
  6. LIPITOR [Concomitant]
  7. MINITRAN [Concomitant]
  8. ALBUTEROL [Concomitant]
  9. LASIX [Concomitant]

REACTIONS (2)
  - BRADYCARDIA [None]
  - CHEST PAIN [None]
